FAERS Safety Report 10054760 (Version 2)
Quarter: 2014Q2

REPORT INFORMATION
  Report Type: Spontaneous
  Country: US (occurrence: US)
  Receive Date: 20140402
  Receipt Date: 20140402
  Transmission Date: 20141212
  Serious: No
  Sender: FDA-Public Use
  Company Number: US-AMGEN-USASP2014019177

PATIENT
  Age: 47 Year
  Sex: Female

DRUGS (3)
  1. ENBREL [Suspect]
     Indication: PSORIATIC ARTHROPATHY
     Dosage: 50 MG, QWK
     Route: 065
     Dates: start: 20060220
  2. ENBREL [Suspect]
     Indication: PSORIASIS
  3. HEPATITIS B VACCIN [Concomitant]
     Indication: HEPATITIS B
     Dosage: UNK
     Dates: start: 201303

REACTIONS (2)
  - Decreased immune responsiveness [Unknown]
  - Psoriasis [Not Recovered/Not Resolved]
